FAERS Safety Report 21106414 (Version 1)
Quarter: 2022Q3

REPORT INFORMATION
  Report Type: Spontaneous
  Country: US (occurrence: US)
  Receive Date: 20220720
  Receipt Date: 20220720
  Transmission Date: 20221027
  Serious: Yes (Hospitalization)
  Sender: FDA-Public Use
  Company Number: US-MYLANLABS-2022M1078995

PATIENT
  Sex: Female
  Weight: 65.77 kg

DRUGS (1)
  1. ESTRADIOL [Suspect]
     Active Substance: ESTRADIOL
     Indication: Product used for unknown indication
     Dosage: 0.5 GRAM, 3XW
     Route: 067
     Dates: start: 20220615, end: 202206

REACTIONS (1)
  - Overdose [Unknown]
